FAERS Safety Report 9665942 (Version 1)
Quarter: 2013Q4

REPORT INFORMATION
  Report Type: Spontaneous
  Country: FR (occurrence: FR)
  Receive Date: 20131104
  Receipt Date: 20131104
  Transmission Date: 20140711
  Serious: Yes (Hospitalization)
  Sender: FDA-Public Use
  Company Number: FR-SA-2013SA107598

PATIENT
  Age: 48 Year
  Sex: Female

DRUGS (6)
  1. TAXOTERE [Suspect]
     Indication: PRODUCT USED FOR UNKNOWN INDICATION
     Route: 042
     Dates: start: 20130527, end: 20130527
  2. KALETRA [Interacting]
     Indication: PRODUCT USED FOR UNKNOWN INDICATION
     Route: 048
     Dates: end: 20130605
  3. ENDOXAN [Concomitant]
     Route: 042
     Dates: start: 20130527, end: 20130527
  4. ADRIBLASTINE [Concomitant]
     Dosage: LYOPHILISATE FOR PARENTERAL USE (INFUSION) IN VIAL
     Route: 042
     Dates: start: 20130527, end: 20130527
  5. ISENTRESS [Concomitant]
     Route: 048
     Dates: end: 20130605
  6. EPIVIR [Concomitant]
     Route: 048
     Dates: end: 20130605

REACTIONS (9)
  - Hypokalaemia [Recovered/Resolved]
  - Hyponatraemia [Recovered/Resolved]
  - Pain [Recovered/Resolved]
  - Mucosal inflammation [Recovered/Resolved]
  - Pancytopenia [Recovered/Resolved]
  - Colitis [Recovered/Resolved]
  - Ileus paralytic [Recovered/Resolved]
  - Interstitial lung disease [Recovered/Resolved]
  - Palmar-plantar erythrodysaesthesia syndrome [Recovered/Resolved]
